FAERS Safety Report 20224883 (Version 4)
Quarter: 2022Q1

REPORT INFORMATION
  Report Type: Spontaneous
  Country: US (occurrence: US)
  Receive Date: 20211223
  Receipt Date: 20220207
  Transmission Date: 20220423
  Serious: Yes (Other)
  Sender: FDA-Public Use
  Company Number: US-SANOFI-00901412

PATIENT
  Sex: Male

DRUGS (1)
  1. LANTUS SOLOSTAR [Suspect]
     Active Substance: INSULIN GLARGINE
     Indication: Type 2 diabetes mellitus
     Dosage: 12 IU, QD (EACH DAY)
     Route: 065

REACTIONS (4)
  - Diabetes mellitus inadequate control [Unknown]
  - Product quality issue [Unknown]
  - Cataract [Unknown]
  - Eye disorder [Unknown]
